FAERS Safety Report 25876085 (Version 1)
Quarter: 2025Q4

REPORT INFORMATION
  Report Type: Spontaneous
  Country: US (occurrence: US)
  Receive Date: 20251003
  Receipt Date: 20251003
  Transmission Date: 20260118
  Serious: No
  Sender: ROCHE
  Company Number: US-ROCHE-10000395145

PATIENT

DRUGS (1)
  1. OCREVUS [Suspect]
     Active Substance: OCRELIZUMAB
     Indication: Multiple sclerosis
     Route: 065

REACTIONS (6)
  - Sensory disturbance [Unknown]
  - Peripheral swelling [Unknown]
  - Urinary tract infection [Unknown]
  - Dehydration [Unknown]
  - Neurogenic bladder [Unknown]
  - Joint swelling [Unknown]
